FAERS Safety Report 10614217 (Version 3)
Quarter: 2015Q2

REPORT INFORMATION
  Report Type: Spontaneous
  Country: CO (occurrence: CO)
  Receive Date: 20141128
  Receipt Date: 20150612
  Transmission Date: 20150821
  Serious: Yes (Hospitalization)
  Sender: FDA-Public Use
  Company Number: CO-ALLERGAN-1424557US

PATIENT
  Age: 84 Year
  Sex: Female
  Weight: 45.99 kg

DRUGS (2)
  1. ALPHAGAN P [Suspect]
     Active Substance: BRIMONIDINE TARTRATE
     Indication: PREOPERATIVE CARE
     Dosage: 2 GTT, UNK
     Route: 047
     Dates: start: 20140820
  2. ISOPTOCARPINA [Concomitant]
     Indication: PREOPERATIVE CARE
     Dosage: 2 GTT, UNK
     Route: 047
     Dates: start: 20140820

REACTIONS (4)
  - Off label use [Unknown]
  - Hypertensive crisis [Recovered/Resolved]
  - Syncope [Recovered/Resolved]
  - Dehydration [Recovered/Resolved]

NARRATIVE: CASE EVENT DATE: 20140820
